FAERS Safety Report 5304617-1 (Version None)
Quarter: 2007Q2

REPORT INFORMATION
  Report Type: 
  Country: None (occurrence: None)
  Receive Date: 20070423
  Receipt Date: 20070417
  Transmission Date: 20071010
  Serious: Yes (Hospitalization)
  Sender: FDA-Public Use
  Company Number: JP-JPN-A200701556

PATIENT
  Age: 13 Year
  Sex: Male
  Weight: 58 kg

DRUGS (3)
  1. RELENZA [Suspect]
     Indication: INFLUENZA
     Dosage: 10MG TWICE PER DAY
     Route: 055
     Dates: start: 20070324, end: 20070328
  2. UNKNOWN MEDICATION [Concomitant]
     Route: 042
  3. ANTIPYRETIC [Concomitant]
     Route: 042

REACTIONS (1)
  - ABNORMAL BEHAVIOUR [None]
